FAERS Safety Report 12991565 (Version 14)
Quarter: 2017Q2

REPORT INFORMATION
  Report Type: Report from Study
  Country: MX (occurrence: MX)
  Receive Date: 20161201
  Receipt Date: 20170524
  Transmission Date: 20170830
  Serious: Yes (Hospitalization)
  Sender: FDA-Public Use
  Company Number: MX-PFIZER INC-2016553611

PATIENT
  Age: 61 Year
  Sex: Female
  Weight: 87 kg

DRUGS (9)
  1. EXEL /01044401/ [Concomitant]
     Dosage: 15 MG, 1X/DAY
     Route: 048
     Dates: start: 20160516
  2. RIOPAN /00429801/ [Concomitant]
     Dosage: 10 ML (8G 1G), 2X/DAY
     Dates: start: 20160822
  3. LEDERTREXATE [Suspect]
     Active Substance: METHOTREXATE
     Dosage: 15 MG, WEEKLY
     Route: 048
     Dates: start: 2000
  4. MICARDIS [Concomitant]
     Active Substance: TELMISARTAN
     Dosage: 12.5MG/80MG, 1X/DAY
     Route: 048
     Dates: start: 2014
  5. TRIACOR [Concomitant]
     Dosage: 5 MG, 1X/DAY
     Route: 048
     Dates: start: 2014
  6. ETANERCEPT [Suspect]
     Active Substance: ETANERCEPT
     Indication: RHEUMATOID ARTHRITIS
     Dosage: 50 MG, WEEKLY
     Route: 058
     Dates: start: 20160613, end: 20161121
  7. FOLIVITAL [Concomitant]
     Dosage: 5 MG, 1X/DAY
     Route: 048
     Dates: start: 2000
  8. LOSECA [Concomitant]
     Dosage: 20 MG, 1X/DAY
     Route: 048
     Dates: start: 20100611
  9. METICORTEN [Suspect]
     Active Substance: PREDNISONE
     Dosage: 5 MG, 2X/DAY
     Route: 048
     Dates: start: 201509

REACTIONS (1)
  - Arthritis bacterial [Recovered/Resolved]

NARRATIVE: CASE EVENT DATE: 20161123
